FAERS Safety Report 5851865-8 (Version None)
Quarter: 2008Q3

REPORT INFORMATION
  Report Type: 
  Country: None (occurrence: None)
  Receive Date: 20080819
  Receipt Date: 20080806
  Transmission Date: 20090109
  Serious: Yes (Hospitalization)
  Sender: FDA-Public Use
  Company Number: 080807-0000586

PATIENT
  Age: 34 Year
  Sex: Male

DRUGS (6)
  1. ELSPAR [Suspect]
     Indication: NON-HODGKIN'S LYMPHOMA
  2. ELSPAR [Suspect]
     Indication: T-CELL LYMPHOMA
  3. VINCRISTINE [Suspect]
     Indication: NON-HODGKIN'S LYMPHOMA
  4. VINCRISTINE [Suspect]
     Indication: T-CELL LYMPHOMA
  5. DOXORUBICIN HCL [Suspect]
     Indication: NON-HODGKIN'S LYMPHOMA
  6. DOXORUBICIN HCL [Suspect]
     Indication: T-CELL LYMPHOMA

REACTIONS (8)
  - BLOOD CHOLESTEROL INCREASED [None]
  - DIARRHOEA HAEMORRHAGIC [None]
  - HEPATIC STEATOSIS [None]
  - HYPERTRIGLYCERIDAEMIA [None]
  - PANCREATITIS ACUTE [None]
  - PITTING OEDEMA [None]
  - RESPIRATORY RATE INCREASED [None]
  - TACHYCARDIA [None]
